FAERS Safety Report 11293173 (Version 2)
Quarter: 2015Q3

REPORT INFORMATION
  Report Type: Spontaneous
  Country: US (occurrence: US)
  Receive Date: 20150722
  Receipt Date: 20150906
  Transmission Date: 20151125
  Serious: No
  Sender: FDA-Public Use
  Company Number: US-009507513-1507USA006306

PATIENT
  Age: 84 Year
  Sex: Female

DRUGS (1)
  1. ASMANEX [Suspect]
     Active Substance: MOMETASONE FUROATE
     Dosage: 220 MCG/30 INHALATIONS
     Route: 055
     Dates: start: 20150709

REACTIONS (2)
  - Drug dose omission [Unknown]
  - Secretion discharge [Unknown]

NARRATIVE: CASE EVENT DATE: 201507
